FAERS Safety Report 5058628-4 (Version None)
Quarter: 2006Q3

REPORT INFORMATION
  Report Type: 
  Country: None (occurrence: None)
  Receive Date: 20060721
  Receipt Date: 20060718
  Transmission Date: 20061208
  Serious: Yes (Other)
  Sender: FDA-Public Use
  Company Number: TH-MERCK-0607THA00007

PATIENT
  Age: 39 Year
  Sex: Male

DRUGS (3)
  1. SINGULAIR [Suspect]
     Indication: ASTHMA
     Route: 048
     Dates: start: 20060101
  2. PREDNISOLONE [Concomitant]
     Route: 048
     Dates: start: 20060101
  3. [COMPOSITION UNSPECIFIED] [Concomitant]
     Indication: ACQUIRED IMMUNODEFICIENCY SYNDROME
     Route: 065
     Dates: start: 20060101

REACTIONS (1)
  - WEIGHT DECREASED [None]
